FAERS Safety Report 7686080-9 (Version None)
Quarter: 2011Q3

REPORT INFORMATION
  Report Type: 
  Country: None (occurrence: None)
  Receive Date: 20110811
  Receipt Date: 20110729
  Transmission Date: 20111222
  Serious: Yes (Hospitalization, Other)
  Sender: FDA-Public Use
  Company Number: AUR-APL-2010-02956

PATIENT
  Age: 70 Year
  Sex: Female

DRUGS (1)
  1. ALENDRONIC ACID (ALENDRONIC ACID) [Suspect]
     Dosage: ORAL
     Route: 048
     Dates: start: 20020101

REACTIONS (4)
  - PUBIS FRACTURE [None]
  - FEMUR FRACTURE [None]
  - PAIN IN EXTREMITY [None]
  - IMPAIRED HEALING [None]
